FAERS Safety Report 8978507 (Version 7)
Quarter: 2014Q3

REPORT INFORMATION
  Report Type: Spontaneous
  Country: US (occurrence: US)
  Receive Date: 20121220
  Receipt Date: 20140822
  Transmission Date: 20150326
  Serious: Yes (Disabling, Other)
  Sender: FDA-Public Use
  Company Number: US-009507513-1212USA007562

PATIENT
  Sex: Male
  Weight: 120.18 kg

DRUGS (3)
  1. PROPECIA [Suspect]
     Active Substance: FINASTERIDE
     Indication: ANDROGENETIC ALOPECIA
     Dosage: 1 MG, QD
     Route: 048
     Dates: start: 2001, end: 2010
  2. LEVOXYL [Concomitant]
     Active Substance: LEVOTHYROXINE SODIUM
     Indication: HYPOTHYROIDISM
     Dosage: UNK
     Route: 048
     Dates: start: 1997
  3. PROPECIA [Suspect]
     Active Substance: FINASTERIDE
     Indication: HAIR DISORDER

REACTIONS (23)
  - Semen volume decreased [Not Recovered/Not Resolved]
  - Nephrolithiasis [Unknown]
  - Blood testosterone decreased [Unknown]
  - Orgasm abnormal [Not Recovered/Not Resolved]
  - Weight decreased [Unknown]
  - Insomnia [Unknown]
  - Drug ineffective [Unknown]
  - Vitamin D deficiency [Recovered/Resolved]
  - Abdominoplasty [Unknown]
  - Erectile dysfunction [Not Recovered/Not Resolved]
  - Major depression [Unknown]
  - Hypogonadism male [Unknown]
  - Marital problem [Unknown]
  - Depression [Not Recovered/Not Resolved]
  - Anxiety [Not Recovered/Not Resolved]
  - Paranoia [Recovered/Resolved]
  - Nephrolithiasis [Unknown]
  - Vasectomy [Unknown]
  - Obsessive thoughts [Recovered/Resolved]
  - Lethargy [Unknown]
  - Libido decreased [Not Recovered/Not Resolved]
  - Amnesia [Not Recovered/Not Resolved]
  - Cognitive disorder [Not Recovered/Not Resolved]

NARRATIVE: CASE EVENT DATE: 2002
